FAERS Safety Report 7351082-9 (Version None)
Quarter: 2011Q1

REPORT INFORMATION
  Report Type: 
  Country: None (occurrence: None)
  Receive Date: 20110314
  Receipt Date: 20110302
  Transmission Date: 20110831
  Serious: Yes (Hospitalization)
  Sender: FDA-Public Use
  Company Number: GB-JNJFOC-2010029029

PATIENT
  Sex: Female
  Weight: 64 kg

DRUGS (3)
  1. REGAINE FOR WOMAN [Suspect]
     Indication: ALOPECIA
     Dosage: MORE THAN 1 ML
     Route: 061
  2. REGAINE FOR WOMAN [Suspect]
     Route: 061
  3. YASMIN [Concomitant]
     Indication: ORAL CONTRACEPTION
     Route: 048

REACTIONS (13)
  - INSOMNIA [None]
  - MALAISE [None]
  - VISUAL IMPAIRMENT [None]
  - OVERDOSE [None]
  - HEART RATE INCREASED [None]
  - ARTHRALGIA [None]
  - HYPERHIDROSIS [None]
  - ARTHROPATHY [None]
  - STRESS [None]
  - ABASIA [None]
  - SWELLING [None]
  - EMOTIONAL DISTRESS [None]
  - GROWTH RETARDATION [None]
